FAERS Safety Report 14705172 (Version 2)
Quarter: 2018Q2

REPORT INFORMATION
  Report Type: Report from Study
  Country: US (occurrence: US)
  Receive Date: 20180402
  Receipt Date: 20180525
  Transmission Date: 20180711
  Serious: Yes (Hospitalization, Other)
  Sender: FDA-Public Use
  Company Number: US-JNJFOC-20160619133

PATIENT
  Age: 58 Year
  Sex: Female

DRUGS (5)
  1. IMBRUVICA [Suspect]
     Active Substance: IBRUTINIB
     Indication: CHRONIC LYMPHOCYTIC LEUKAEMIA
     Route: 048
     Dates: start: 20140218
  2. AMLODIPINE [Concomitant]
     Active Substance: AMLODIPINE BESYLATE
     Indication: CARDIAC DISORDER
     Route: 048
  3. ASPIRIN. [Suspect]
     Active Substance: ASPIRIN
     Indication: PRODUCT USED FOR UNKNOWN INDICATION
     Route: 065
     Dates: end: 201708
  4. IMBRUVICA [Suspect]
     Active Substance: IBRUTINIB
     Indication: CHRONIC LYMPHOCYTIC LEUKAEMIA
     Route: 048
     Dates: start: 20140218, end: 20180418
  5. IMBRUVICA [Suspect]
     Active Substance: IBRUTINIB
     Indication: CHRONIC LYMPHOCYTIC LEUKAEMIA
     Route: 048
     Dates: start: 201401

REACTIONS (17)
  - Balance disorder [Unknown]
  - Off label use [Unknown]
  - Anaemia [Unknown]
  - Dermatitis contact [Not Recovered/Not Resolved]
  - Arthralgia [Recovering/Resolving]
  - Epistaxis [Recovering/Resolving]
  - Malignant melanoma [Recovered/Resolved]
  - Myalgia [Recovering/Resolving]
  - Seasonal allergy [Not Recovered/Not Resolved]
  - Blood immunoglobulin G decreased [Unknown]
  - Skin burning sensation [Unknown]
  - Incorrect dose administered [Unknown]
  - Contusion [Recovered/Resolved]
  - Pyrexia [Unknown]
  - Respiratory tract infection viral [Recovering/Resolving]
  - Basal cell carcinoma [Unknown]
  - Fall [Unknown]

NARRATIVE: CASE EVENT DATE: 20140218
